FAERS Safety Report 6964418-5 (Version None)
Quarter: 2010Q3

REPORT INFORMATION
  Report Type: 
  Country: None (occurrence: None)
  Receive Date: 20100903
  Receipt Date: 20100824
  Transmission Date: 20110219
  Serious: Yes (Other)
  Sender: FDA-Public Use
  Company Number: JP-PFIZER INC-2010102328

PATIENT
  Age: 49 Year
  Sex: Female

DRUGS (4)
  1. GABAPEN [Suspect]
     Indication: EPILEPSY
     Dosage: 1000MG/DAY
     Route: 048
     Dates: start: 20100101
  2. TEGRETOL [Suspect]
     Indication: EPILEPSY
     Dosage: 600MG/DAY
     Route: 048
     Dates: start: 20100101
  3. SOLANAX [Concomitant]
     Dosage: UNK
     Route: 048
  4. SELBEX [Concomitant]
     Dosage: UNK
     Route: 048

REACTIONS (1)
  - GAMMA-GLUTAMYLTRANSFERASE INCREASED [None]
